FAERS Safety Report 25925073 (Version 1)
Quarter: 2025Q4

REPORT INFORMATION
  Report Type: Spontaneous
  Country: US (occurrence: None)
  Receive Date: 20251015
  Receipt Date: 20251015
  Transmission Date: 20260117
  Serious: Yes (Hospitalization)
  Sender: FDA-CTU
  Company Number: None

PATIENT
  Sex: Female

DRUGS (1)
  1. EPOGEN [Suspect]
     Active Substance: ERYTHROPOIETIN
     Indication: Nephrogenic anaemia
     Dosage: OTHER STRENGTH : 10000 U/M;?FREQUENCY : WEEKLY;?
     Route: 058
     Dates: start: 20250806

REACTIONS (2)
  - Peripheral swelling [None]
  - Therapy change [None]
